FAERS Safety Report 8836956 (Version 1)
Quarter: 2012Q4

REPORT INFORMATION
  Report Type: Spontaneous
  Country: US (occurrence: None)
  Receive Date: 20121011
  Receipt Date: 20121011
  Transmission Date: 20130627
  Serious: No
  Sender: FDA-Public Use
  Company Number: None

PATIENT
  Age: 59 Year
  Sex: Male
  Weight: 122.7 kg

DRUGS (1)
  1. WARFARIN [Suspect]
     Dosage: 6 MG EVERY DAY PO
     Route: 048
     Dates: start: 20120901, end: 20120914

REACTIONS (2)
  - International normalised ratio abnormal [None]
  - Toxicity to various agents [None]
